FAERS Safety Report 14321140 (Version 3)
Quarter: 2018Q1

REPORT INFORMATION
  Report Type: Report from Study
  Country: US (occurrence: US)
  Receive Date: 20171223
  Receipt Date: 20180316
  Transmission Date: 20180509
  Serious: Yes (Other)
  Sender: FDA-Public Use
  Company Number: US-AMGEN-USASL2017166064

PATIENT
  Sex: Female

DRUGS (2)
  1. KYPROLIS [Suspect]
     Active Substance: CARFILZOMIB
     Indication: PLASMA CELL MYELOMA
     Dosage: 27 MG/M2, ON DAY 1, 2, 8, 9, 15 AND 16 EVERY 28 DAYS
     Route: 065
  2. KYPROLIS [Suspect]
     Active Substance: CARFILZOMIB
     Dosage: UNK UNK, QMO
     Route: 065

REACTIONS (8)
  - Throat irritation [Not Recovered/Not Resolved]
  - Loss of consciousness [Unknown]
  - Pain in extremity [Unknown]
  - Dry throat [Not Recovered/Not Resolved]
  - Memory impairment [Unknown]
  - Balance disorder [Unknown]
  - Fatigue [Unknown]
  - Neuropathy peripheral [Unknown]
